FAERS Safety Report 4754825-3 (Version None)
Quarter: 2005Q3

REPORT INFORMATION
  Report Type: 
  Country: None (occurrence: None)
  Receive Date: 20050825
  Receipt Date: 20050816
  Transmission Date: 20060218
  Serious: Yes (Death, Hospitalization)
  Sender: FDA-Public Use
  Company Number: 2005111569

PATIENT
  Age: 64 Year
  Sex: Male

DRUGS (3)
  1. CARDURA XL [Suspect]
     Indication: BENIGN PROSTATIC HYPERPLASIA
     Dosage: 4 MG (4 MG, ONCE DAILY), ORAL
     Route: 048
     Dates: start: 20050605, end: 20050727
  2. CAPTOPRIL [Concomitant]
  3. ASPIRIN [Concomitant]

REACTIONS (3)
  - CHEST PAIN [None]
  - MYOCARDIAL INFARCTION [None]
  - SPINAL DISORDER [None]
